FAERS Safety Report 8877679 (Version 1)
Quarter: 2012Q4

REPORT INFORMATION
  Report Type: 
  Country: US (occurrence: US)
  Receive Date: 20121024
  Receipt Date: 20121024
  Transmission Date: 20130627
  Serious: Yes (Hospitalization)
  Sender: FDA-Public Use
  Company Number: US-ROCHE-GNE239246

PATIENT
  Age: 40 Year
  Sex: Male
  Weight: 83.99 kg

DRUGS (2)
  1. RAPTIVA [Suspect]
     Indication: PSORIASIS
     Dosage: 0.8 mL, single
     Route: 058
     Dates: start: 20070113
  2. RAPTIVA [Suspect]
     Dosage: 0.6 mL, 1/Week
     Route: 058
     Dates: start: 20070120

REACTIONS (5)
  - Abdominal tenderness [Recovering/Resolving]
  - Chromaturia [Unknown]
  - Pneumonia [Unknown]
  - Skin fissures [Unknown]
  - Rash pustular [Unknown]
